FAERS Safety Report 14573681 (Version 1)
Quarter: 2018Q1

REPORT INFORMATION
  Report Type: Spontaneous
  Country: US (occurrence: US)
  Receive Date: 20180226
  Receipt Date: 20180226
  Transmission Date: 20180509
  Serious: Yes (Other)
  Sender: FDA-Public Use
  Company Number: US-DSJP-DSU-2017-146068

PATIENT

DRUGS (1)
  1. BENICAR [Suspect]
     Active Substance: OLMESARTAN MEDOXOMIL
     Indication: PRODUCT USED FOR UNKNOWN INDICATION
     Dosage: 20 MG, UNK
     Dates: start: 20130510, end: 20160101

REACTIONS (7)
  - Gastrooesophageal reflux disease [Recovered/Resolved]
  - Polyp [Unknown]
  - Weight decreased [Unknown]
  - Gastric ulcer [Unknown]
  - Irritable bowel syndrome [Recovered/Resolved]
  - Presyncope [Unknown]
  - Hiatus hernia [Unknown]

NARRATIVE: CASE EVENT DATE: 20131121
